FAERS Safety Report 17220151 (Version 2)
Quarter: 2025Q4

REPORT INFORMATION
  Report Type: Spontaneous
  Country: EU (occurrence: EU)
  Receive Date: 20191231
  Receipt Date: 20251103
  Transmission Date: 20260117
  Serious: Yes (Life-Threatening, Other)
  Sender: ASTELLAS
  Company Number: None

PATIENT
  Age: 50 Year
  Sex: Female

DRUGS (20)
  1. PROGRAF [Suspect]
     Active Substance: TACROLIMUS
     Indication: Lung transplant
     Route: 065
     Dates: start: 20111107, end: 20111116
  2. PROGRAF [Suspect]
     Active Substance: TACROLIMUS
     Indication: Immunosuppression
  3. VFEND [Suspect]
     Active Substance: VORICONAZOLE
     Indication: Infection
     Dosage: 400 MG, 2X/DAY; DOSAGE FORM: UNSPECIFIED
     Route: 065
     Dates: start: 20111024
  4. CELLCEPT [Suspect]
     Active Substance: MYCOPHENOLATE MOFETIL
     Indication: Immunosuppression
     Dosage: 1 G, 2X/DAY
     Route: 065
     Dates: start: 20111024
  5. CYCLOSPORINE [Suspect]
     Active Substance: CYCLOSPORINE
     Indication: Immunosuppression
     Dosage: DOSAGE FORM: UNSPECIFIED
     Route: 042
     Dates: start: 20111024, end: 20111109
  6. CYCLOSPORINE [Suspect]
     Active Substance: CYCLOSPORINE
     Dosage: DOSAGE FORM: UNSPECIFIED
     Route: 042
     Dates: start: 20111116
  7. EPREX [Suspect]
     Active Substance: ERYTHROPOIETIN
     Indication: Anaemia
     Dosage: 8000 IU, THRICE WEEKLY
     Route: 065
     Dates: start: 20111024
  8. INVANZ [Suspect]
     Active Substance: ERTAPENEM SODIUM
     Indication: Infection
     Dosage: DOSAGE FORM: UNSPECIFIED
     Route: 065
     Dates: start: 20111110, end: 20111114
  9. ATROVENT [Concomitant]
     Active Substance: IPRATROPIUM BROMIDE
     Indication: Product used for unknown indication
     Dosage: 3 DF DAILY; DOSAGE FORM: UNSPECIFIED
     Route: 065
  10. BRICANYL [Concomitant]
     Active Substance: TERBUTALINE SULFATE
     Indication: Product used for unknown indication
     Dosage: 3 DF DAILY; DOSAGE FORM: UNSPECIFIED
     Route: 065
  11. PREDNISONE [Concomitant]
     Active Substance: PREDNISONE
     Indication: Product used for unknown indication
     Dosage: DOSAGE FORM: UNSPECIFIED
     Route: 065
  12. PREDNISONE [Concomitant]
     Active Substance: PREDNISONE
     Dosage: 35 MG, UNKNOWN FREQ.
     Route: 065
  13. DAFALGAN [Concomitant]
     Active Substance: ACETAMINOPHEN
     Indication: Product used for unknown indication
     Dosage: 1 G, 4X/DAY; DOSAGE FORM: UNSPECIFIED
     Route: 065
  14. LEUCOVORIN CALCIUM [Concomitant]
     Active Substance: LEUCOVORIN CALCIUM
     Indication: Product used for unknown indication
     Dosage: 25 MG, 3X/WEEK; DOSAGE FORM: UNSPECIFIED
     Route: 065
  15. LEUCOVORIN CALCIUM [Concomitant]
     Active Substance: LEUCOVORIN CALCIUM
     Dosage: 75 MG, ONCE DAILY
     Route: 065
  16. ESOMEPRAZOLE [Concomitant]
     Active Substance: ESOMEPRAZOLE
     Indication: Product used for unknown indication
     Dosage: 40 MG DAILY; DOSAGE FORM: UNSPECIFIED
     Route: 065
  17. FUROSEMIDE [Concomitant]
     Active Substance: FUROSEMIDE
     Indication: Product used for unknown indication
     Dosage: 40 MG DAILY; DOSAGE FORM: UNSPECIFIED
     Route: 065
  18. UMULINE [Concomitant]
     Active Substance: INSULIN HUMAN
     Indication: Product used for unknown indication
     Dosage: UNK UNK, UNKNOWN FREQ.
     Route: 065
  19. VALACYCLOVIR HYDROCHLORIDE [Concomitant]
     Active Substance: VALACYCLOVIR HYDROCHLORIDE
     Indication: Product used for unknown indication
     Dosage: 100 MG, 2X/DAY; DOSAGE FORM: UNSPECIFIED
     Route: 065
  20. ESOMEPRAZOLE [Concomitant]
     Active Substance: ESOMEPRAZOLE
     Indication: Product used for unknown indication
     Dosage: 40 MG, UNKNOWN FREQ.
     Route: 065

REACTIONS (3)
  - Partial seizures [Recovering/Resolving]
  - Posterior reversible encephalopathy syndrome [Recovered/Resolved]
  - Product use in unapproved indication [Unknown]

NARRATIVE: CASE EVENT DATE: 20111107
